FAERS Safety Report 9535543 (Version 1)
Quarter: 2013Q3

REPORT INFORMATION
  Report Type: Spontaneous
  Country: US (occurrence: US)
  Receive Date: 20130919
  Receipt Date: 20130919
  Transmission Date: 20140515
  Serious: Yes (Hospitalization)
  Sender: FDA-Public Use
  Company Number: US-AMGEN-USASP2013065299

PATIENT
  Sex: 0

DRUGS (5)
  1. EPOGEN [Suspect]
     Indication: RENAL FAILURE CHRONIC
     Dosage: UNK
     Route: 065
  2. EPOGEN [Suspect]
     Indication: RENAL FAILURE CHRONIC
  3. LOVENOX [Concomitant]
     Dosage: UNK
  4. HEPARIN [Concomitant]
     Dosage: UNK
  5. COUMADIN                           /00014802/ [Concomitant]
     Dosage: UNK

REACTIONS (4)
  - Device occlusion [Unknown]
  - Arteriovenous fistula [Unknown]
  - Pulmonary embolism [Unknown]
  - Deep vein thrombosis [Unknown]
